FAERS Safety Report 23107153 (Version 1)
Quarter: 2023Q4

REPORT INFORMATION
  Report Type: Spontaneous
  Country: JP (occurrence: JP)
  Receive Date: 20231026
  Receipt Date: 20231026
  Transmission Date: 20240109
  Serious: Yes (Other)
  Sender: FDA-Public Use
  Company Number: JP-JNJFOC-20231055449

PATIENT
  Sex: Male
  Weight: 22.9 kg

DRUGS (2)
  1. RISPERDAL [Suspect]
     Active Substance: RISPERIDONE
     Indication: Product used for unknown indication
     Dosage: ABOUT 5 TO 10 MG
     Route: 048
  2. QUETIAPINE [Concomitant]
     Active Substance: QUETIAPINE
     Dosage: DOSE UNKNOWN
     Route: 048

REACTIONS (2)
  - Intentional overdose [Unknown]
  - Drug diversion [Unknown]
